FAERS Safety Report 6910142-4 (Version None)
Quarter: 2010Q3

REPORT INFORMATION
  Report Type: 
  Country: None (occurrence: None)
  Receive Date: 20100806
  Receipt Date: 20100726
  Transmission Date: 20110219
  Serious: Yes (Hospitalization)
  Sender: FDA-Public Use
  Company Number: KR-ELI_LILLY_AND_COMPANY-KR201007006249

PATIENT
  Sex: Female

DRUGS (1)
  1. HUMALOG [Suspect]
     Dosage: UNK, UNKNOWN
     Route: 058

REACTIONS (3)
  - ABASIA [None]
  - OEDEMA PERIPHERAL [None]
  - PARALYSIS [None]
